FAERS Safety Report 7325437-2 (Version None)
Quarter: 2011Q1

REPORT INFORMATION
  Report Type: 
  Country: None (occurrence: None)
  Receive Date: 20110302
  Receipt Date: 20110222
  Transmission Date: 20110831
  Serious: No
  Sender: FDA-Public Use
  Company Number: US-JNJFOC-20110206188

PATIENT
  Sex: Male

DRUGS (2)
  1. DURAGESIC-50 [Suspect]
     Indication: BACK PAIN
     Route: 065
  2. DURAGESIC-50 [Suspect]
     Route: 062

REACTIONS (1)
  - WRONG TECHNIQUE IN DRUG USAGE PROCESS [None]
